FAERS Safety Report 9983369 (Version 2)
Quarter: 2014Q1

REPORT INFORMATION
  Report Type: Spontaneous
  Country: US (occurrence: US)
  Receive Date: 20140307
  Receipt Date: 20140307
  Transmission Date: 20141002
  Serious: Yes (Other)
  Sender: FDA-Public Use
  Company Number: US-SA-2014SA020843

PATIENT
  Sex: Male

DRUGS (1)
  1. LANTUS [Suspect]
     Route: 058

REACTIONS (7)
  - Convulsion [Unknown]
  - Skin discolouration [Unknown]
  - Weight decreased [Unknown]
  - Hyperglycaemia [Unknown]
  - Loss of consciousness [Unknown]
  - Incoherent [Unknown]
  - Drug dose omission [Unknown]
